FAERS Safety Report 6985547-6 (Version None)
Quarter: 2010Q3

REPORT INFORMATION
  Report Type: 
  Country: None (occurrence: None)
  Receive Date: 20100915
  Receipt Date: 20100903
  Transmission Date: 20110219
  Serious: Yes (Hospitalization)
  Sender: FDA-Public Use
  Company Number: US-JNJFOC-20100703340

PATIENT
  Sex: Female
  Weight: 12.02 kg

DRUGS (7)
  1. CHILDREN'S MOTRIN [Suspect]
     Indication: PRODUCT USED FOR UNKNOWN INDICATION
     Route: 048
  2. CHILDREN'S MOTRIN [Suspect]
     Route: 048
  3. CHILDREN'S MOTRIN [Suspect]
     Indication: MALAISE
     Route: 048
  4. CHILDREN'S MOTRIN [Suspect]
     Route: 048
  5. CHILDREN'S MOTRIN [Suspect]
     Indication: PYREXIA
     Route: 048
  6. CHILDREN'S MOTRIN [Suspect]
     Route: 048
  7. CHILDREN'S TYLENOL SUSPENSION [Concomitant]
     Indication: VIRAL INFECTION

REACTIONS (4)
  - ANGIOEDEMA [None]
  - HYPERSENSITIVITY [None]
  - IDIOPATHIC URTICARIA [None]
  - PRODUCT QUALITY ISSUE [None]
